FAERS Safety Report 6238030-X (Version None)
Quarter: 2009Q2

REPORT INFORMATION
  Report Type: 
  Country: None (occurrence: None)
  Receive Date: 20090617
  Receipt Date: 20090617
  Transmission Date: 20091009
  Serious: Yes (Hospitalization)
  Sender: FDA-Public Use
  Company Number: None

PATIENT
  Sex: Female
  Weight: 64.4108 kg

DRUGS (15)
  1. OXALIPLATIN [Suspect]
     Indication: OVARIAN CANCER RECURRENT
     Dosage: 75MG/M2 IP
     Route: 033
     Dates: start: 20090528
  2. DOCETAXEL [Suspect]
     Dosage: 75MG/M2 IV
     Route: 042
     Dates: start: 20090527
  3. MACRODANTIN [Concomitant]
  4. FOSAMAX [Concomitant]
  5. XANTAX [Concomitant]
  6. XALATAN [Concomitant]
  7. LOTEIN [Concomitant]
  8. PREERVISION [Concomitant]
  9. FISH OIL [Concomitant]
  10. MULTI-VITAMIN [Concomitant]
  11. METAMUCI [Concomitant]
  12. CALCUIM [Concomitant]
  13. ASPIRIN [Concomitant]
  14. PAXIL [Concomitant]
  15. NIASTATIN [Concomitant]

REACTIONS (4)
  - CLOSTRIDIAL INFECTION [None]
  - DIARRHOEA [None]
  - FATIGUE [None]
  - PYREXIA [None]
